FAERS Safety Report 7923855-2 (Version None)
Quarter: 2011Q4

REPORT INFORMATION
  Report Type: 
  Country: None (occurrence: None)
  Receive Date: 20111117
  Receipt Date: 20110209
  Transmission Date: 20120403
  Serious: No
  Sender: FDA-Public Use
  Company Number: US-AMGEN-USASP2011007753

PATIENT
  Age: 18 Year
  Sex: Female

DRUGS (3)
  1. PREDNISONE TAB [Concomitant]
  2. ENBREL [Suspect]
     Indication: RHEUMATOID ARTHRITIS
     Dosage: 25 MG, 2 TIMES/WK
     Dates: start: 20060201
  3. METHOTREXATE [Concomitant]

REACTIONS (9)
  - INJECTION SITE REACTION [None]
  - PAIN IN EXTREMITY [None]
  - INJECTION SITE RASH [None]
  - INJECTION SITE VESICLES [None]
  - SKIN DISCOMFORT [None]
  - LIVER DISORDER [None]
  - SKIN INDURATION [None]
  - INJECTION SITE HAEMATOMA [None]
  - INJECTION SITE PRURITUS [None]
